FAERS Safety Report 6686016-3 (Version None)
Quarter: 2010Q2

REPORT INFORMATION
  Report Type: 
  Country: None (occurrence: None)
  Receive Date: 20100415
  Receipt Date: 20100415
  Transmission Date: 20101027
  Serious: No
  Sender: FDA-Public Use
  Company Number: None

PATIENT
  Age: 53 Year
  Sex: Female
  Weight: 64.8644 kg

DRUGS (3)
  1. LEVAQUIN [Suspect]
     Indication: SURGERY
     Dosage: DOSE GIVEN DURING SURGERY IV
     Route: 042
     Dates: start: 20080808, end: 20080808
  2. CIPRO [Suspect]
     Indication: SURGERY
     Dosage: TWICE A DAY, I BELIEVE 7 DAYS PO
     Route: 048
     Dates: start: 20080809, end: 20080816
  3. FACTIVE/STEROID [Concomitant]

REACTIONS (38)
  - ALOPECIA [None]
  - AMNESIA [None]
  - ANHEDONIA [None]
  - ANXIETY [None]
  - APHASIA [None]
  - DECREASED INTEREST [None]
  - DEPRESSED MOOD [None]
  - DISTURBANCE IN ATTENTION [None]
  - DIZZINESS [None]
  - DRUG EFFECT DECREASED [None]
  - DRUG TOXICITY [None]
  - EMOTIONAL DISORDER [None]
  - ERYTHEMA [None]
  - FATIGUE [None]
  - FEELING ABNORMAL [None]
  - FLUSHING [None]
  - GAIT DISTURBANCE [None]
  - HEADACHE [None]
  - IMPAIRED WORK ABILITY [None]
  - INITIAL INSOMNIA [None]
  - INSOMNIA [None]
  - JOINT CREPITATION [None]
  - LIP SWELLING [None]
  - LOSS OF EMPLOYMENT [None]
  - MEMORY IMPAIRMENT [None]
  - MENTAL DISORDER [None]
  - MUSCULOSKELETAL CHEST PAIN [None]
  - NEUROPATHY PERIPHERAL [None]
  - OEDEMA PERIPHERAL [None]
  - PAIN IN EXTREMITY [None]
  - PALPITATIONS [None]
  - RASH [None]
  - SINUSITIS [None]
  - SOCIAL PROBLEM [None]
  - SOMNOLENCE [None]
  - THINKING ABNORMAL [None]
  - UNEVALUABLE EVENT [None]
  - WEIGHT BEARING DIFFICULTY [None]
